FAERS Safety Report 4315148-X (Version None)
Quarter: 2004Q1

REPORT INFORMATION
  Report Type: 
  Country: None (occurrence: None)
  Receive Date: 20040310
  Receipt Date: 20040224
  Transmission Date: 20041129
  Serious: Yes (Hospitalization)
  Sender: FDA-Public Use
  Company Number: DE-GLAXOSMITHKLINE-D0043236A

PATIENT
  Age: 66 Year
  Sex: Male

DRUGS (5)
  1. TAGONIS [Suspect]
     Indication: DEPRESSION
     Dosage: 20MG PER DAY
     Route: 048
     Dates: start: 19980130
  2. SIFROL [Concomitant]
     Dosage: 1.5TAB THREE TIMES PER DAY
     Route: 048
     Dates: start: 20000101
  3. MADOPAR [Concomitant]
     Dosage: 1.75MG PER DAY
     Route: 048
     Dates: start: 20000101
  4. NACOM [Concomitant]
     Dosage: 100MG TWICE PER DAY
     Route: 048
     Dates: start: 20000101
  5. ASS [Concomitant]
     Dosage: 100MG PER DAY
     Route: 048
     Dates: start: 20000101

REACTIONS (3)
  - COLITIS [None]
  - CROHN'S DISEASE [None]
  - DIARRHOEA [None]
